FAERS Safety Report 21929833 (Version 3)
Quarter: 2023Q2

REPORT INFORMATION
  Report Type: Report from Study
  Country: US (occurrence: US)
  Receive Date: 20230131
  Receipt Date: 20230508
  Transmission Date: 20230722
  Serious: Yes (Disabling, Other)
  Sender: FDA-Public Use
  Company Number: US-KADMON CORPORATION, LLC-US-KAD-22-00981

PATIENT
  Age: 52 Year
  Sex: Male

DRUGS (3)
  1. BELUMOSUDIL MESYLATE [Suspect]
     Active Substance: BELUMOSUDIL MESYLATE
     Indication: Graft versus host disease
     Dosage: 200 MG, QD
     Route: 048
     Dates: start: 20220707
  2. GLEEVEC [Concomitant]
     Active Substance: IMATINIB MESYLATE
  3. PANTOPRAZOLE [Concomitant]
     Active Substance: PANTOPRAZOLE

REACTIONS (21)
  - Impaired work ability [Unknown]
  - Lung disorder [Recovering/Resolving]
  - Pneumonia [Unknown]
  - Dry skin [Unknown]
  - Skin haemorrhage [Unknown]
  - Lip swelling [Unknown]
  - Oral discomfort [Unknown]
  - Dry eye [Unknown]
  - Dry mouth [Unknown]
  - Depressed mood [Unknown]
  - Insomnia [Unknown]
  - Pigmentation disorder [Unknown]
  - Pruritus [Unknown]
  - Rash [Unknown]
  - Dyspnoea [Not Recovered/Not Resolved]
  - Condition aggravated [Not Recovered/Not Resolved]
  - Influenza [Unknown]
  - Immune system disorder [Unknown]
  - Dizziness [Unknown]
  - Cough [Unknown]
  - Pyrexia [Unknown]
